FAERS Safety Report 8382086-5 (Version None)
Quarter: 2012Q1

REPORT INFORMATION
  Report Type: 
  Country: None (occurrence: None)
  Receive Date: 20120323
  Receipt Date: 20110513
  Transmission Date: 20120608
  Serious: Yes (Hospitalization)
  Sender: FDA-Public Use
  Company Number: 163-21880-11051746

PATIENT
  Age: 75 Year
  Sex: Male

DRUGS (3)
  1. REVLIMID [Suspect]
     Indication: MULTIPLE MYELOMA
     Dosage: 10 MG, 1 IN 1 D, PO ; 5MG-10MG, PO ; 5 MG, QD X 28 DAYS, PO
     Route: 048
     Dates: start: 20100409
  2. REVLIMID [Suspect]
     Indication: MULTIPLE MYELOMA
     Dosage: 10 MG, 1 IN 1 D, PO ; 5MG-10MG, PO ; 5 MG, QD X 28 DAYS, PO
     Route: 048
     Dates: start: 20100501
  3. REVLIMID [Suspect]
     Indication: MULTIPLE MYELOMA
     Dosage: 10 MG, 1 IN 1 D, PO ; 5MG-10MG, PO ; 5 MG, QD X 28 DAYS, PO
     Route: 048
     Dates: start: 20110301, end: 20110405

REACTIONS (1)
  - CEREBROVASCULAR ACCIDENT [None]
